FAERS Safety Report 5498201-7 (Version None)
Quarter: 2007Q4

REPORT INFORMATION
  Report Type: 
  Country: None (occurrence: None)
  Receive Date: 20071025
  Receipt Date: 20070507
  Transmission Date: 20080405
  Serious: No
  Sender: FDA-Public Use
  Company Number: A0646825A

PATIENT
  Age: 58 Year
  Sex: Male
  Weight: 106.4 kg

DRUGS (9)
  1. ADVAIR DISKUS 100/50 [Suspect]
     Indication: DRUG USE FOR UNKNOWN INDICATION
     Dosage: 1PUFF TWICE PER DAY
     Route: 055
     Dates: start: 20070212
  2. SPIRIVA [Concomitant]
  3. ALBUTEROL [Concomitant]
  4. FLOMAX [Concomitant]
  5. DOXYCYCLINE [Concomitant]
  6. LAMICTAL [Concomitant]
  7. ABILIFY [Concomitant]
  8. CLONAZEPAM [Concomitant]
  9. AVELOX [Concomitant]

REACTIONS (2)
  - DRUG INEFFECTIVE [None]
  - PHARMACEUTICAL PRODUCT COMPLAINT [None]
